FAERS Safety Report 8859429 (Version 1)
Quarter: 2012Q4

REPORT INFORMATION
  Report Type: Spontaneous
  Country: IT (occurrence: None)
  Receive Date: 20121023
  Receipt Date: 20121023
  Transmission Date: 20130627
  Serious: Yes (Other)
  Sender: FDA-Public Use
  Company Number: AUR-APL-2012-04522

PATIENT
  Age: 91 Year
  Sex: Female

DRUGS (9)
  1. CEFTRIAXONE (CEFTRIAXONE) [Suspect]
     Indication: DRUG USE FOR UNKNOWN INDICATION
     Route: 030
     Dates: start: 20121001, end: 20121008
  2. NITROCOR (GLYCERYL TRINITRATE) [Concomitant]
  3. FLUIMUCIL (ACETYLCYSTEINE) [Concomitant]
  4. LANTUS (INSULIN GLARGINE) [Concomitant]
  5. HUMALOG (INSULIN) [Concomitant]
  6. GARDENALE (PHENOBARBITAL) [Concomitant]
  7. TIKLID (TICLOPIDINE HYDROCHLORIDE) [Concomitant]
  8. SIMVASTATIN (SIMVASTATIN) [Concomitant]
  9. CARVEDILOL (CARVEDILOL) [Concomitant]

REACTIONS (3)
  - Bronchopneumonia [None]
  - Drug ineffective [None]
  - Mucosal dryness [None]
